FAERS Safety Report 4830429-9 (Version None)
Quarter: 2005Q4

REPORT INFORMATION
  Report Type: 
  Country: None (occurrence: None)
  Receive Date: 20051117
  Receipt Date: 20051108
  Transmission Date: 20060501
  Serious: Yes (Death)
  Sender: FDA-Public Use
  Company Number: IT-ROCHE-424200

PATIENT
  Age: 67 Year
  Sex: Male

DRUGS (5)
  1. TORADOL [Suspect]
     Indication: PAIN
     Route: 030
     Dates: start: 20050915, end: 20050915
  2. AULIN [Suspect]
     Indication: PAIN
     Route: 048
     Dates: start: 20050928, end: 20051004
  3. REMINYL [Suspect]
     Route: 048
     Dates: start: 20050801, end: 20051004
  4. RISPERDAL [Concomitant]
     Route: 048
  5. STILNOX [Concomitant]
     Route: 048

REACTIONS (14)
  - ANAEMIA [None]
  - CARDIAC ARREST [None]
  - CARDIOVASCULAR DISORDER [None]
  - DUODENAL ULCER [None]
  - EMPHYSEMA [None]
  - GASTRIC ULCER [None]
  - HAEMORRHAGE [None]
  - HEPATIC STEATOSIS [None]
  - HIATUS HERNIA [None]
  - HYPOVOLAEMIC SHOCK [None]
  - MELAENA [None]
  - MYOCARDIAL INFARCTION [None]
  - PULMONARY OEDEMA [None]
  - THERAPY NON-RESPONDER [None]
